FAERS Safety Report 19893302 (Version 2)
Quarter: 2021Q4

REPORT INFORMATION
  Report Type: Spontaneous
  Country: US (occurrence: US)
  Receive Date: 20210929
  Receipt Date: 20211118
  Transmission Date: 20220303
  Serious: No
  Sender: FDA-Public Use
  Company Number: US-STRONGBRIDGE BIOPHARMA-2021-STR-000325

PATIENT
  Age: 44 Year
  Sex: Female

DRUGS (3)
  1. KEVEYIS [Suspect]
     Active Substance: DICHLORPHENAMIDE
     Indication: Long QT syndrome
     Dosage: 100 MG, BID
     Route: 048
     Dates: start: 20190313
  2. KEVEYIS [Suspect]
     Active Substance: DICHLORPHENAMIDE
     Dosage: 100 MG, BID
     Route: 048
  3. COVID-19 VACCINE [Concomitant]
     Indication: Immunisation

REACTIONS (4)
  - COVID-19 [Unknown]
  - Urticaria [Unknown]
  - Condition aggravated [Unknown]
  - Off label use [Unknown]

NARRATIVE: CASE EVENT DATE: 20190313
